FAERS Safety Report 21967800 (Version 1)
Quarter: 2023Q1

REPORT INFORMATION
  Report Type: Spontaneous
  Country: CN (occurrence: CN)
  Receive Date: 20230208
  Receipt Date: 20230208
  Transmission Date: 20230418
  Serious: Yes (Other)
  Sender: FDA-Public Use
  Company Number: CN-PFIZER INC-PV202300022989

PATIENT
  Age: 57 Year
  Sex: Male
  Weight: 48 kg

DRUGS (1)
  1. INLYTA [Suspect]
     Active Substance: AXITINIB
     Indication: Malignant urinary tract neoplasm
     Dosage: 5 MG, 1X/DAY
     Route: 048
     Dates: start: 20220628, end: 20230201

REACTIONS (1)
  - Atrial flutter [Unknown]

NARRATIVE: CASE EVENT DATE: 20230201
